FAERS Safety Report 8837214 (Version 1)
Quarter: 2012Q4

REPORT INFORMATION
  Report Type: 
  Country: US (occurrence: US)
  Receive Date: 20121011
  Receipt Date: 20121011
  Transmission Date: 20130627
  Serious: No
  Sender: FDA-Public Use
  Company Number: US-009507513-1210USA003434

PATIENT
  Age: 26 Year
  Sex: Female
  Weight: 150.57 kg

DRUGS (1)
  1. IMPLANON [Suspect]
     Indication: CONTRACEPTION
     Dosage: 1 DF, UNK
     Route: 059
     Dates: start: 201109

REACTIONS (3)
  - Metrorrhagia [Not Recovered/Not Resolved]
  - Medical device complication [Unknown]
  - Device dislocation [Unknown]
